FAERS Safety Report 18078805 (Version 1)
Quarter: 2020Q3

REPORT INFORMATION
  Report Type: Spontaneous
  Country: US (occurrence: US)
  Receive Date: 20200728
  Receipt Date: 20200728
  Transmission Date: 20201103
  Serious: No
  Sender: FDA-Public Use
  Company Number: US-GLENMARK PHARMACEUTICALS-2019GMK043778

PATIENT

DRUGS (2)
  1. MUPIROCIN OINTMENT USP, 2% [Suspect]
     Active Substance: MUPIROCIN
     Indication: NASAL DRYNESS
     Dosage: UNK, BID
     Route: 045
     Dates: start: 2018
  2. BROMIDES [Concomitant]
     Active Substance: UNSPECIFIED INGREDIENT
     Indication: NASAL DRYNESS
     Dosage: UNK (NASAL SOLUTION)
     Route: 065

REACTIONS (5)
  - Product prescribing error [Unknown]
  - Nasal dryness [Unknown]
  - Product use in unapproved indication [Unknown]
  - Condition aggravated [Unknown]
  - Product use issue [Unknown]

NARRATIVE: CASE EVENT DATE: 2018
